FAERS Safety Report 20946564 (Version 1)
Quarter: 2022Q2

REPORT INFORMATION
  Report Type: Spontaneous
  Country: US (occurrence: None)
  Receive Date: 20220610
  Receipt Date: 20220610
  Transmission Date: 20220721
  Serious: Yes (Hospitalization)
  Sender: FDA-Public Use
  Company Number: None

PATIENT
  Age: 23 Year
  Sex: Male

DRUGS (28)
  1. PULMOZYME [Suspect]
     Active Substance: DORNASE ALFA
     Indication: Lung disorder
     Dosage: 2.5MG/2.5ML? INHALE THE CONTENTS OF 1 VIAL VIA NEBULIZER EVERY DAY?
     Route: 055
     Dates: start: 20200324
  2. PULMOZYME [Suspect]
     Active Substance: DORNASE ALFA
     Dosage: OTHER QUANTITY : 1 VIAL ;?OTHER FREQUENCY : NEB EVERY DAY;?
     Route: 055
  3. ALBUTEROL SULFATE [Concomitant]
     Active Substance: ALBUTEROL SULFATE
  4. AMLODIPINE [Concomitant]
  5. AZELASTINE [Concomitant]
  6. AZITHROMYCIN [Concomitant]
     Active Substance: AZITHROMYCIN
  7. BACLOFEN [Concomitant]
     Active Substance: BACLOFEN
  8. BUDESONIDE SUS [Concomitant]
  9. CETIRIZINE HCL [Concomitant]
     Active Substance: CETIRIZINE HYDROCHLORIDE
  10. COLISTIMETH [Concomitant]
  11. COLISTIMETHATE SODIUM [Concomitant]
     Active Substance: COLISTIMETHATE SODIUM
  12. FLUTICASONE SPR [Concomitant]
  13. FYCOMPA [Concomitant]
     Active Substance: PERAMPANEL
  14. HYDROCHOROT [Concomitant]
  15. IPRATROPIUM SOL [Concomitant]
  16. LEVOCARNITIN [Concomitant]
  17. MIRALAX [Concomitant]
     Active Substance: POLYETHYLENE GLYCOL 3350
  18. MONTELUKAST SODIUM [Concomitant]
  19. ONFI [Concomitant]
     Active Substance: CLOBAZAM
  20. PERFOROMIST NEB [Concomitant]
  21. PULMOZYME SOL [Concomitant]
  22. SODIUM CHLORIDE [Concomitant]
     Active Substance: SODIUM CHLORIDE
  23. SPIRONOLACT [Concomitant]
  24. STERILE WATER [Concomitant]
  25. TOBRAMYCIN [Concomitant]
  26. VIGABATRIN [Concomitant]
     Active Substance: VIGABATRIN
  27. VIMPAT [Concomitant]
     Active Substance: LACOSAMIDE
  28. VITAMIN C [Concomitant]
     Active Substance: ASCORBIC ACID

REACTIONS (1)
  - Bacterial toxaemia [None]

NARRATIVE: CASE EVENT DATE: 20220531
